FAERS Safety Report 9620419 (Version 1)
Quarter: 2013Q4

REPORT INFORMATION
  Report Type: Spontaneous
  Country: BR (occurrence: US)
  Receive Date: 20131015
  Receipt Date: 20131015
  Transmission Date: 20140711
  Serious: No
  Sender: FDA-Public Use
  Company Number: -SAAVPROD-BMS17462805

PATIENT
  Sex: Female

DRUGS (2)
  1. APROZIDE [Suspect]
     Dosage: CHANGED TO APROVEL 300/12.5MG
  2. APROVEL [Suspect]

REACTIONS (1)
  - Diarrhoea [Unknown]
